FAERS Safety Report 14995331 (Version 5)
Quarter: 2018Q4

REPORT INFORMATION
  Report Type: Spontaneous
  Country: US (occurrence: US)
  Receive Date: 20180611
  Receipt Date: 20181022
  Transmission Date: 20190204
  Serious: Yes (Hospitalization)
  Sender: FDA-Public Use
  Company Number: US-BIOGEN-2018BI00592024

PATIENT
  Sex: Female

DRUGS (3)
  1. SPINRAZA [Suspect]
     Active Substance: NUSINERSEN
     Dosage: INJECTED SLOWLY OVER 2 MIN
     Route: 037
     Dates: start: 20170419, end: 201804
  2. SPINRAZA [Suspect]
     Active Substance: NUSINERSEN
     Indication: SPINAL MUSCULAR ATROPHY
     Route: 065
     Dates: start: 20170331
  3. TRAMADOL HCL [Concomitant]
     Active Substance: TRAMADOL HYDROCHLORIDE
     Indication: PRODUCT USED FOR UNKNOWN INDICATION
     Dosage: 30 MIN PRIOR TO LUMBAR PUNCTURE
     Route: 048

REACTIONS (5)
  - Muscular weakness [Unknown]
  - Scoliosis [Unknown]
  - Impaired self-care [Unknown]
  - Staphylococcal sepsis [Recovered/Resolved]
  - Dysphagia [Unknown]
